FAERS Safety Report 11124197 (Version 2)
Quarter: 2015Q2

REPORT INFORMATION
  Report Type: Spontaneous
  Country: US (occurrence: None)
  Receive Date: 20150518
  Receipt Date: 20150528
  Transmission Date: 20150821
  Serious: Yes (Death, Hospitalization)
  Sender: FDA-Public Use
  Company Number: US-H14001-15-00715

PATIENT
  Age: 73 Year
  Sex: Female

DRUGS (5)
  1. ZOMETA [Suspect]
     Active Substance: ZOLEDRONIC ACID
     Indication: PLASMA CELL MYELOMA
     Dosage: 4 MG RECEIVED ONLY 1 DOSE OVER 15 MIN, INTRAVENOUS (NOT OTHERWISE SPECIFIED)
     Route: 042
     Dates: start: 20130105, end: 20130105
  2. DEXAMETHASONE (DEXAMETHASONE) (UNKNOWN) (DEXAMETHASONE) [Concomitant]
     Active Substance: DEXAMETHASONE
  3. VELCADE [Concomitant]
     Active Substance: BORTEZOMIB
  4. REVLIMID [Concomitant]
     Active Substance: LENALIDOMIDE
  5. ZOMETA [Suspect]
     Active Substance: ZOLEDRONIC ACID
     Indication: METASTASES TO BONE
     Dosage: 4 MG RECEIVED ONLY 1 DOSE OVER 15 MIN, INTRAVENOUS (NOT OTHERWISE SPECIFIED)
     Route: 042
     Dates: start: 20130105, end: 20130105

REACTIONS (16)
  - Pancytopenia [None]
  - Respiratory distress [None]
  - Nausea [None]
  - Vomiting [None]
  - Cardiac arrest [None]
  - Pyrexia [None]
  - Electrocardiogram QT prolonged [None]
  - Depressed level of consciousness [None]
  - Oedema peripheral [None]
  - Hypocalcaemia [None]
  - Dizziness [None]
  - Cardiomegaly [None]
  - Pulmonary oedema [None]
  - Febrile neutropenia [None]
  - Acute kidney injury [None]
  - Generalised tonic-clonic seizure [None]

NARRATIVE: CASE EVENT DATE: 20130115
